FAERS Safety Report 23665040 (Version 2)
Quarter: 2024Q2

REPORT INFORMATION
  Report Type: Report from Study
  Country: AT (occurrence: AT)
  Receive Date: 20240322
  Receipt Date: 20240503
  Transmission Date: 20240715
  Serious: No
  Sender: FDA-Public Use
  Company Number: AT-Merck Healthcare KGaA-2024014784

PATIENT
  Age: 69 Year
  Sex: Female

DRUGS (2)
  1. TEPOTINIB [Suspect]
     Active Substance: TEPOTINIB
     Indication: Non-small cell lung cancer
     Dates: start: 20240129, end: 20240219
  2. TEPOTINIB [Suspect]
     Active Substance: TEPOTINIB
     Dates: start: 20240227

REACTIONS (1)
  - Alanine aminotransferase increased [Recovered/Resolved]

NARRATIVE: CASE EVENT DATE: 20240219
